FAERS Safety Report 7150020-1 (Version None)
Quarter: 2010Q4

REPORT INFORMATION
  Report Type: 
  Country: None (occurrence: None)
  Receive Date: 20101210
  Receipt Date: 20101201
  Transmission Date: 20110411
  Serious: No
  Sender: FDA-Public Use
  Company Number: US-PFIZER INC-2010163015

PATIENT
  Age: 55 Year
  Sex: Female

DRUGS (3)
  1. LYRICA [Suspect]
     Dosage: 200 UNK, 3X/DAY
  2. CYMBALTA [Suspect]
     Dosage: 60 UNK, 2X/DAY
  3. VICODIN [Suspect]
     Dosage: 7.5 UNK, 4X/DAY

REACTIONS (1)
  - TREMOR [None]
